FAERS Safety Report 10363524 (Version 1)
Quarter: 2014Q1

REPORT INFORMATION
  Report Type: Spontaneous
  Country: US (occurrence: None)
  Receive Date: 20140306
  Receipt Date: 20140306
  Transmission Date: 20141002
  Serious: Yes (Hospitalization)
  Sender: FDA-Public Use
  Company Number: 163-21880-13061619

PATIENT
  Age: 60 Year
  Sex: Male

DRUGS (3)
  1. REVLIMID (LENALIDOMIDE)(25 MILLIGRAM, CAPSULES) [Suspect]
     Indication: PLASMA CELL MYELOMA
     Dosage: 14 IN 21 D
     Route: 048
     Dates: start: 20130304, end: 20130509
  2. B12-ACTIVE(CYANOCOBALAMIN)(UNKNOWN) [Concomitant]
  3. CO Q 10(UBIDECARENONE)(UNKNOWN) [Concomitant]

REACTIONS (1)
  - Diverticulitis [None]
